FAERS Safety Report 23394151 (Version 1)
Quarter: 2024Q1

REPORT INFORMATION
  Report Type: Spontaneous
  Country: US (occurrence: US)
  Receive Date: 20240111
  Receipt Date: 20240111
  Transmission Date: 20240410
  Serious: Yes (Other)
  Sender: FDA-Public Use
  Company Number: US-AMGEN-USASP2024003471

PATIENT
  Age: 55 Year
  Sex: Male

DRUGS (6)
  1. BEVACIZUMAB [Suspect]
     Active Substance: BEVACIZUMAB
     Indication: Malignant oligodendroglioma
     Dosage: 10 MILLIGRAM/KILOGRAM, Q3WK
     Route: 065
     Dates: start: 201805, end: 202012
  2. BEVACIZUMAB [Suspect]
     Active Substance: BEVACIZUMAB
     Dosage: 7.5 MILLIGRAM/KILOGRAM, Q3WK
     Route: 065
     Dates: start: 2021, end: 202206
  3. BEVACIZUMAB [Suspect]
     Active Substance: BEVACIZUMAB
     Dosage: 5 MILLIGRAM/KILOGRAM, Q3WK
     Route: 065
     Dates: start: 202206, end: 202212
  4. BEVACIZUMAB [Suspect]
     Active Substance: BEVACIZUMAB
     Dosage: 2.5 MILLIGRAM/KILOGRAM, Q3WK
     Route: 065
     Dates: start: 202305
  5. PEMBROLIZUMAB [Concomitant]
     Active Substance: PEMBROLIZUMAB
     Indication: Malignant oligodendroglioma
     Dosage: UNK
     Route: 065
     Dates: start: 2019, end: 202104
  6. PEMBROLIZUMAB [Concomitant]
     Active Substance: PEMBROLIZUMAB
     Dosage: UNK
     Route: 065
     Dates: start: 2021, end: 202206

REACTIONS (5)
  - Malignant oligodendroglioma [Recovering/Resolving]
  - Transient ischaemic attack [Unknown]
  - Adverse event [Unknown]
  - Urine protein/creatinine ratio increased [Unknown]
  - Off label use [Unknown]

NARRATIVE: CASE EVENT DATE: 20190101
